FAERS Safety Report 22180448 (Version 10)
Quarter: 2024Q2

REPORT INFORMATION
  Report Type: Spontaneous
  Country: FR (occurrence: FR)
  Receive Date: 20230406
  Receipt Date: 20240523
  Transmission Date: 20240716
  Serious: Yes (Hospitalization, Other)
  Sender: FDA-Public Use
  Company Number: FR-BIOGARAN-B23000551

PATIENT
  Age: 38 Year
  Sex: Female

DRUGS (79)
  1. LAMOTRIGINE [Interacting]
     Active Substance: LAMOTRIGINE
     Indication: Personality disorder
     Dosage: 25 MILLIGRAM, QD
     Route: 065
     Dates: start: 20220608, end: 20220622
  2. LAMOTRIGINE [Interacting]
     Active Substance: LAMOTRIGINE
     Indication: Impulsive behaviour
     Dosage: 50 MILLIGRAM, QD
     Route: 065
     Dates: start: 20220623, end: 20220626
  3. LAMOTRIGINE [Interacting]
     Active Substance: LAMOTRIGINE
     Dosage: 75 MILLIGRAM, QD
     Route: 065
     Dates: start: 20220701, end: 20220705
  4. LAMOTRIGINE [Interacting]
     Active Substance: LAMOTRIGINE
     Dosage: 25 MILLIGRAM, QD
     Route: 065
     Dates: start: 20220622, end: 20220622
  5. LAMOTRIGINE [Interacting]
     Active Substance: LAMOTRIGINE
     Dosage: 75 MILLIGRAM, QD
     Route: 065
     Dates: start: 20220705, end: 20220705
  6. LAMOTRIGINE [Interacting]
     Active Substance: LAMOTRIGINE
     Dosage: 25 MILLIGRAM, QD
     Route: 065
     Dates: start: 20220610, end: 20220613
  7. LAMOTRIGINE [Interacting]
     Active Substance: LAMOTRIGINE
     Dosage: 25 MILLIGRAM, QD
     Route: 065
     Dates: start: 20220608, end: 20220608
  8. LAMOTRIGINE [Interacting]
     Active Substance: LAMOTRIGINE
     Dosage: 75 MILLIGRAM, QD
     Route: 065
     Dates: start: 20220701, end: 20220701
  9. LAMOTRIGINE [Interacting]
     Active Substance: LAMOTRIGINE
     Dosage: 50 MILLIGRAM, QD
     Route: 065
     Dates: start: 20220623, end: 20220626
  10. ARIPIPRAZOLE [Interacting]
     Active Substance: ARIPIPRAZOLE
     Indication: Personality disorder
     Dosage: 5 MG, QD
     Route: 065
     Dates: start: 20220610, end: 20220611
  11. ARIPIPRAZOLE [Interacting]
     Active Substance: ARIPIPRAZOLE
     Indication: Impulsive behaviour
     Dosage: 10 MG, QD
     Route: 065
     Dates: start: 20220612, end: 20220612
  12. ARIPIPRAZOLE [Interacting]
     Active Substance: ARIPIPRAZOLE
     Dosage: 15 MG, QD
     Route: 065
     Dates: start: 20220613, end: 20220623
  13. ARIPIPRAZOLE [Interacting]
     Active Substance: ARIPIPRAZOLE
     Dosage: 30 MG, QD
     Route: 065
     Dates: start: 20220624, end: 20220705
  14. ARIPIPRAZOLE [Interacting]
     Active Substance: ARIPIPRAZOLE
     Dosage: 30 MILLIGRAM, QD
     Route: 065
     Dates: start: 20220701, end: 20220701
  15. ARIPIPRAZOLE [Interacting]
     Active Substance: ARIPIPRAZOLE
     Dosage: 10 MILLIGRAM, QD
     Route: 065
     Dates: start: 20220705, end: 20220705
  16. ARIPIPRAZOLE [Interacting]
     Active Substance: ARIPIPRAZOLE
     Dosage: 30 MILLIGRAM, QD
     Route: 065
     Dates: start: 20220624, end: 20220624
  17. ARIPIPRAZOLE [Interacting]
     Active Substance: ARIPIPRAZOLE
     Dosage: 15 MILLIGRAM, QD
     Route: 065
     Dates: start: 20220613, end: 20220623
  18. OLANZAPINE [Suspect]
     Active Substance: OLANZAPINE
     Indication: Antipsychotic therapy
     Dosage: 10 MG, QD
     Route: 065
  19. OLANZAPINE [Suspect]
     Active Substance: OLANZAPINE
     Dosage: 10 MG, QD
     Route: 065
  20. OLANZAPINE [Suspect]
     Active Substance: OLANZAPINE
     Dosage: 10 MG, QD
     Route: 065
     Dates: start: 2021, end: 2022
  21. OLANZAPINE [Suspect]
     Active Substance: OLANZAPINE
     Dosage: 10 MG, QD
     Route: 065
     Dates: start: 20220706, end: 20220706
  22. OLANZAPINE [Suspect]
     Active Substance: OLANZAPINE
     Dosage: 20 MG, QD
     Route: 065
     Dates: start: 20220727, end: 20220826
  23. QUETIAPINE [Suspect]
     Active Substance: QUETIAPINE
     Indication: Antipsychotic therapy
     Dosage: 400 MG, QD
     Route: 065
  24. QUETIAPINE [Suspect]
     Active Substance: QUETIAPINE
     Dosage: 400 MG, QD
     Route: 065
  25. QUETIAPINE [Suspect]
     Active Substance: QUETIAPINE
     Dosage: 400 MG, QD
     Route: 065
     Dates: start: 202203, end: 20220605
  26. QUETIAPINE [Suspect]
     Active Substance: QUETIAPINE
     Dosage: 400 MG, QD
     Route: 065
     Dates: start: 20220422, end: 20220426
  27. QUETIAPINE [Suspect]
     Active Substance: QUETIAPINE
     Dosage: 300 MG, QD
     Route: 065
     Dates: start: 20220528, end: 20220528
  28. AMISULPRIDE [Suspect]
     Active Substance: AMISULPRIDE
     Indication: Antipsychotic therapy
     Dosage: 50 MG, QD
     Route: 065
     Dates: start: 202203, end: 20220422
  29. AMISULPRIDE [Suspect]
     Active Substance: AMISULPRIDE
     Dosage: 50 MG, QD
     Route: 065
     Dates: start: 20220422, end: 20220422
  30. ZOPICLONE [Interacting]
     Active Substance: ZOPICLONE
     Indication: Sedation
     Dosage: 7.5 MILLIGRAM, QD
     Route: 065
     Dates: start: 20220422
  31. ZOPICLONE [Interacting]
     Active Substance: ZOPICLONE
     Indication: Major depression
     Dosage: 7.5 MILLIGRAM, QD
     Route: 065
     Dates: start: 20220426, end: 20220426
  32. ZOPICLONE [Interacting]
     Active Substance: ZOPICLONE
     Dosage: 7.5 MILLIGRAM, QD
     Route: 065
     Dates: start: 20220528, end: 20220528
  33. ZOPICLONE [Interacting]
     Active Substance: ZOPICLONE
     Dosage: 7.5 MILLIGRAM, QD
     Route: 065
     Dates: start: 20220705, end: 20220705
  34. ZOPICLONE [Interacting]
     Active Substance: ZOPICLONE
     Dosage: 7.5 MILLIGRAM, QD
     Route: 065
     Dates: start: 20220608, end: 20220608
  35. ZOPICLONE [Interacting]
     Active Substance: ZOPICLONE
     Dosage: 7.5 MILLIGRAM, QD
     Route: 065
     Dates: start: 20220422, end: 20220423
  36. ZOPICLONE [Interacting]
     Active Substance: ZOPICLONE
     Dosage: 7.5 MILLIGRAM, QD
     Route: 065
     Dates: start: 20220717, end: 20220717
  37. ZOPICLONE [Interacting]
     Active Substance: ZOPICLONE
     Dosage: 7.5 MILLIGRAM, QD
     Route: 065
     Dates: start: 20220727, end: 20220727
  38. ZOPICLONE [Interacting]
     Active Substance: ZOPICLONE
     Dosage: 7.5 MILLIGRAM, QD
     Route: 065
     Dates: start: 20220605, end: 20220605
  39. CYAMEMAZINE [Suspect]
     Active Substance: CYAMEMAZINE
     Indication: Product used for unknown indication
     Dosage: 150 MILLIGRAM, QD
     Route: 065
     Dates: start: 20220422, end: 20220423
  40. CYAMEMAZINE [Suspect]
     Active Substance: CYAMEMAZINE
     Dosage: 150 MILLIGRAM, QD
     Route: 065
     Dates: start: 20220605, end: 20220605
  41. CYAMEMAZINE [Suspect]
     Active Substance: CYAMEMAZINE
     Dosage: 150 MILLIGRAM, QD
     Route: 065
     Dates: start: 20220608, end: 20220608
  42. CYAMEMAZINE [Suspect]
     Active Substance: CYAMEMAZINE
     Dosage: 150 MILLIGRAM, QD
     Route: 065
     Dates: start: 20220528, end: 20220528
  43. CYAMEMAZINE [Suspect]
     Active Substance: CYAMEMAZINE
     Dosage: 150 MILLIGRAM, QD
     Route: 065
     Dates: start: 20220610
  44. CYAMEMAZINE [Suspect]
     Active Substance: CYAMEMAZINE
     Dosage: 150 MILLIGRAM, QD
     Route: 065
     Dates: start: 20220426, end: 20220426
  45. PAROXETINE [Suspect]
     Active Substance: PAROXETINE
     Indication: Major depression
     Dosage: 20 MG, QD
     Route: 065
     Dates: start: 20220423, end: 20220423
  46. PAROXETINE [Suspect]
     Active Substance: PAROXETINE
     Indication: Depressive symptom
     Dosage: 40 MG, QD
     Route: 065
     Dates: start: 20220426, end: 20220610
  47. PAROXETINE [Suspect]
     Active Substance: PAROXETINE
     Dosage: 20 MG, QD
     Route: 065
     Dates: start: 20220611, end: 20220612
  48. PAROXETINE [Suspect]
     Active Substance: PAROXETINE
     Dosage: 10 MG, QD
     Route: 065
     Dates: start: 20220613, end: 20220625
  49. PAROXETINE [Suspect]
     Active Substance: PAROXETINE
     Dosage: 40 MILLIGRAM, QD
     Route: 065
     Dates: start: 20220528
  50. PAROXETINE [Suspect]
     Active Substance: PAROXETINE
     Dosage: 40 MILLIGRAM, QD
     Route: 065
     Dates: start: 20220608, end: 20220608
  51. PAROXETINE [Suspect]
     Active Substance: PAROXETINE
     Dosage: 40 MILLIGRAM, QD
     Route: 065
     Dates: start: 20220605, end: 20220605
  52. PAROXETINE [Suspect]
     Active Substance: PAROXETINE
     Dosage: 40 MILLIGRAM
     Route: 065
     Dates: start: 20220426
  53. PAROXETINE [Suspect]
     Active Substance: PAROXETINE
     Dosage: 40 MILLIGRAM, QD
     Route: 065
     Dates: start: 20220423, end: 20220423
  54. MIRTAZAPINE [Interacting]
     Active Substance: MIRTAZAPINE
     Indication: Depressive symptom
     Dosage: 15 MG, QD
     Route: 065
  55. MIRTAZAPINE [Interacting]
     Active Substance: MIRTAZAPINE
     Indication: Major depression
     Dosage: 7.5 MG, QD
     Route: 065
     Dates: start: 20220610, end: 20220611
  56. MIRTAZAPINE [Interacting]
     Active Substance: MIRTAZAPINE
     Indication: Insomnia
     Dosage: 15 MG, QD
     Route: 065
     Dates: start: 20220612, end: 20220622
  57. MIRTAZAPINE [Interacting]
     Active Substance: MIRTAZAPINE
     Dosage: 30 MG, QD
     Route: 065
     Dates: start: 20220623, end: 20220624
  58. MIRTAZAPINE [Interacting]
     Active Substance: MIRTAZAPINE
     Dosage: 15 MG, QD
     Route: 065
     Dates: start: 2021, end: 2022
  59. TROLNITRATE [Suspect]
     Active Substance: TROLNITRATE
     Indication: Sedative therapy
     Dosage: 30 MILLIGRAM, QD
     Route: 065
     Dates: start: 20220422
  60. DIAZEPAM [Interacting]
     Active Substance: DIAZEPAM
     Indication: Sedation
     Dosage: 30 MILLIGRAM, QD
     Route: 065
     Dates: start: 20220422
  61. DIAZEPAM [Interacting]
     Active Substance: DIAZEPAM
     Dosage: 30 MILLIGRAM, QD
     Route: 065
     Dates: start: 20220608, end: 20220608
  62. DIAZEPAM [Interacting]
     Active Substance: DIAZEPAM
     Dosage: 30 MILLIGRAM, QD
     Route: 065
     Dates: start: 20220727, end: 20220727
  63. DIAZEPAM [Interacting]
     Active Substance: DIAZEPAM
     Dosage: 30 MILLIGRAM, QD
     Route: 065
     Dates: start: 20220605, end: 20220605
  64. DIAZEPAM [Interacting]
     Active Substance: DIAZEPAM
     Dosage: 30 MILLIGRAM, QD
     Route: 065
     Dates: start: 20220705, end: 20220706
  65. DIAZEPAM [Interacting]
     Active Substance: DIAZEPAM
     Dosage: 30 MILLIGRAM, QD
     Route: 065
     Dates: start: 20220622, end: 20220626
  66. DIAZEPAM [Interacting]
     Active Substance: DIAZEPAM
     Dosage: 30 MILLIGRAM, QD
     Route: 065
     Dates: start: 20220610, end: 20220613
  67. DIAZEPAM [Interacting]
     Active Substance: DIAZEPAM
     Dosage: 30 MILLIGRAM, QD
     Route: 065
     Dates: start: 20220426, end: 20220426
  68. DIAZEPAM [Interacting]
     Active Substance: DIAZEPAM
     Dosage: 30 MILLIGRAM, QD
     Route: 065
     Dates: start: 20220528, end: 20220528
  69. DIAZEPAM [Interacting]
     Active Substance: DIAZEPAM
     Dosage: 30 MILLIGRAM, QD
     Route: 065
     Dates: start: 20220422, end: 20220423
  70. DIAZEPAM [Interacting]
     Active Substance: DIAZEPAM
     Dosage: 30 MILLIGRAM, QD
     Route: 065
     Dates: start: 20220701, end: 20220701
  71. NEXPLANON [Concomitant]
     Active Substance: ETONOGESTREL
     Indication: Contraception
     Dosage: UNK
     Route: 023
     Dates: start: 2021
  72. ETONOGESTREL [Concomitant]
     Active Substance: ETONOGESTREL
     Indication: Contraception
     Dosage: UNK (INTRA-UTERINE IMPLANT)
     Route: 065
  73. ETONOGESTREL [Concomitant]
     Active Substance: ETONOGESTREL
     Indication: Contraceptive implant
  74. CYAMEMAZINE [Concomitant]
     Active Substance: CYAMEMAZINE
     Indication: Major depression
     Dosage: 150 MILLIGRAM, QD
     Route: 065
     Dates: start: 20220610
  75. CYAMEMAZINE [Concomitant]
     Active Substance: CYAMEMAZINE
     Dosage: 150 MILLIGRAM, QD
     Route: 065
     Dates: start: 20220608, end: 20220608
  76. CYAMEMAZINE [Concomitant]
     Active Substance: CYAMEMAZINE
     Dosage: 150 MILLIGRAM, QD
     Route: 065
     Dates: start: 20220528, end: 20220528
  77. CYAMEMAZINE [Concomitant]
     Active Substance: CYAMEMAZINE
     Dosage: 150 MILLIGRAM, QD
     Route: 065
     Dates: start: 20220605, end: 20220605
  78. CYAMEMAZINE [Concomitant]
     Active Substance: CYAMEMAZINE
     Dosage: 150 MILLIGRAM, QD
     Route: 065
     Dates: start: 20220422, end: 20220423
  79. CYAMEMAZINE [Concomitant]
     Active Substance: CYAMEMAZINE
     Dosage: 150 MILLIGRAM, QD
     Route: 065
     Dates: start: 20220426, end: 20220426

REACTIONS (22)
  - Suicidal ideation [Recovered/Resolved]
  - Depressive symptom [Recovered/Resolved]
  - Delirium [Recovered/Resolved]
  - Hallucination, visual [Recovered/Resolved]
  - Dystonia [Unknown]
  - Insomnia [Recovered/Resolved]
  - Thinking abnormal [Unknown]
  - Agitation [Recovered/Resolved]
  - Impulsive behaviour [Recovered/Resolved]
  - Psychotic symptom [Recovered/Resolved]
  - Weight increased [Unknown]
  - Condition aggravated [Recovered/Resolved]
  - Confusional state [Recovered/Resolved]
  - Drug ineffective [Unknown]
  - Drug interaction [Recovered/Resolved]
  - Drug-genetic interaction [Recovered/Resolved]
  - Delusion [Recovered/Resolved]
  - Sleep disorder [Unknown]
  - Affect lability [Unknown]
  - Disorganised speech [Unknown]
  - Behaviour disorder [Unknown]
  - Product use in unapproved indication [Unknown]

NARRATIVE: CASE EVENT DATE: 20220528
